FAERS Safety Report 21256724 (Version 1)
Quarter: 2022Q3

REPORT INFORMATION
  Report Type: Spontaneous
  Country: US (occurrence: US)
  Receive Date: 20220826
  Receipt Date: 20220826
  Transmission Date: 20221026
  Serious: No
  Sender: FDA-Public Use
  Company Number: US-GLAXOSMITHKLINE-USCH2022AMR029305

PATIENT
  Age: 47 Year
  Sex: Female

DRUGS (9)
  1. ADVIL [Suspect]
     Active Substance: IBUPROFEN
     Indication: Migraine
     Dosage: UNK
     Route: 065
  2. REMODULIN [Suspect]
     Active Substance: TREPROSTINIL
     Indication: Pulmonary arterial hypertension
     Dosage: UNK
     Dates: start: 201910
  3. REMODULIN [Suspect]
     Active Substance: TREPROSTINIL
     Dosage: 0.060 ?G/KG
     Route: 058
     Dates: end: 202207
  4. REMODULIN [Suspect]
     Active Substance: TREPROSTINIL
     Dosage: 0.060 ?G/KG
     Route: 058
     Dates: start: 202207
  5. REMODULIN [Suspect]
     Active Substance: TREPROSTINIL
     Dosage: 0.045 ?G/KG
     Route: 058
  6. REMODULIN [Suspect]
     Active Substance: TREPROSTINIL
     Dosage: UNK
     Route: 058
  7. REMODULIN [Suspect]
     Active Substance: TREPROSTINIL
     Dosage: 0.040 ?G/KG, 31 UL/HR
     Route: 058
  8. REMODULIN [Suspect]
     Active Substance: TREPROSTINIL
     Dosage: 0.04 ?G/KG
     Route: 058
  9. TYLENOL [Suspect]
     Active Substance: ACETAMINOPHEN
     Indication: Migraine
     Dosage: UNK

REACTIONS (15)
  - Staphylococcal infection [Recovering/Resolving]
  - Infusion site pain [Unknown]
  - Infusion site swelling [Unknown]
  - Infusion site erythema [Unknown]
  - Condition aggravated [Unknown]
  - Infusion site cellulitis [Recovered/Resolved]
  - Nausea [Recovering/Resolving]
  - Migraine [Not Recovered/Not Resolved]
  - Flushing [Not Recovered/Not Resolved]
  - Illness [Unknown]
  - Vomiting [Unknown]
  - Diarrhoea [Unknown]
  - Hangover [Unknown]
  - Fatigue [Unknown]
  - Nervousness [Unknown]

NARRATIVE: CASE EVENT DATE: 20220701
